FAERS Safety Report 17606709 (Version 1)
Quarter: 2020Q1

REPORT INFORMATION
  Report Type: Spontaneous
  Country: US (occurrence: US)
  Receive Date: 20200331
  Receipt Date: 20200331
  Transmission Date: 20200409
  Serious: No
  Sender: FDA-Public Use
  Company Number: US-BIOMARINAP-US-2020-128904

PATIENT
  Weight: 16 kg

DRUGS (1)
  1. NAGLAZYME [Suspect]
     Active Substance: GALSULFASE
     Indication: PRODUCT USED FOR UNKNOWN INDICATION
     Dosage: 16 UNK
     Route: 065

REACTIONS (3)
  - Catheter site discolouration [Unknown]
  - Catheter site swelling [Unknown]
  - Product dose omission [Unknown]
